FAERS Safety Report 9251478 (Version 1)
Quarter: 2013Q2

REPORT INFORMATION
  Report Type: Report from Study
  Country: RU (occurrence: RU)
  Receive Date: 20130424
  Receipt Date: 20130424
  Transmission Date: 20140414
  Serious: Yes (Hospitalization)
  Sender: FDA-Public Use
  Company Number: RU-ROCHE-1217004

PATIENT
  Age: 52 Year
  Sex: Female
  Weight: 71 kg

DRUGS (2)
  1. PEG-INTERFERON ALFA 2A [Suspect]
     Indication: CHRONIC HEPATITIS C
     Dosage: 20/MAR/2013: DATE OF LAST DOSE PRIOR TO EVENT
     Route: 050
     Dates: start: 20121005
  2. RIBAVIRIN [Suspect]
     Indication: CHRONIC HEPATITIS C
     Dosage: 27/MAR/2013: DATE OF LAST DOSE PRIOR TO EVENT
     Route: 048
     Dates: start: 20121005

REACTIONS (1)
  - Otitis externa [Recovered/Resolved]
